FAERS Safety Report 4496815-4 (Version None)
Quarter: 2004Q4

REPORT INFORMATION
  Report Type: 
  Country: None (occurrence: None)
  Receive Date: 20041109
  Receipt Date: 20041018
  Transmission Date: 20050328
  Serious: Yes (Death, Other)
  Sender: FDA-Public Use
  Company Number: PHBS2004ES13755

PATIENT
  Age: 80 Year
  Sex: Female

DRUGS (1)
  1. SANDOSTATIN LAR [Suspect]
     Indication: ACROMEGALY
     Dosage: 30 MG, QMO
     Route: 030
     Dates: start: 20040315

REACTIONS (6)
  - ALOPECIA [None]
  - CEREBELLAR HAEMORRHAGE [None]
  - COMA [None]
  - HYPERTENSIVE CARDIOMYOPATHY [None]
  - HYPERTENSIVE CRISIS [None]
  - TOXIC NODULAR GOITRE [None]
